FAERS Safety Report 26196483 (Version 1)
Quarter: 2025Q4

REPORT INFORMATION
  Report Type: Spontaneous
  Country: CA (occurrence: CA)
  Receive Date: 20251224
  Receipt Date: 20251224
  Transmission Date: 20260117
  Serious: Yes (Other)
  Sender: CELLTRION
  Company Number: CA-CELLTRION INC.-2025CA002893

PATIENT

DRUGS (6)
  1. TRUXIMA [Suspect]
     Active Substance: RITUXIMAB-ABBS
     Indication: Thrombotic thrombocytopenic purpura
     Dosage: UNK
     Dates: start: 2021
  2. TRUXIMA [Suspect]
     Active Substance: RITUXIMAB-ABBS
     Dosage: 800 MG IV WEEKLY X 4 DOSES
     Route: 042
  3. TRUXIMA [Suspect]
     Active Substance: RITUXIMAB-ABBS
     Dosage: 750MG IV Q 7 DAYS X 4 DOSES
     Route: 042
  4. TRUXIMA [Suspect]
     Active Substance: RITUXIMAB-ABBS
     Dosage: 4 X 500 MG + 8 X 100 MG
  5. TRUXIMA [Suspect]
     Active Substance: RITUXIMAB-ABBS
     Dosage: 375 MG/M2 WEEKLY X 4
  6. TRUXIMA [Suspect]
     Active Substance: RITUXIMAB-ABBS
     Dosage: 800 MG IV WEEKLY X 4 DOSES
     Route: 042
     Dates: start: 202501, end: 202502

REACTIONS (4)
  - Thrombotic thrombocytopenic purpura [Unknown]
  - Disease recurrence [Unknown]
  - Off label use [Unknown]
  - Drug effective for unapproved indication [Unknown]
